FAERS Safety Report 22370712 (Version 3)
Quarter: 2023Q2

REPORT INFORMATION
  Report Type: Spontaneous
  Country: US (occurrence: US)
  Receive Date: 20230526
  Receipt Date: 20230612
  Transmission Date: 20230722
  Serious: Yes (Other)
  Sender: FDA-Public Use
  Company Number: US-PFIZER INC-202300196340

PATIENT
  Age: 57 Year
  Sex: Male

DRUGS (3)
  1. PAXLOVID [Interacting]
     Active Substance: NIRMATRELVIR\RITONAVIR
     Indication: COVID-19 treatment
     Dosage: UNK
  2. TACROLIMUS [Interacting]
     Active Substance: TACROLIMUS
     Indication: Abdominal pain upper
     Dosage: 5 MG EVERY 48 HOURS
  3. TACROLIMUS [Interacting]
     Active Substance: TACROLIMUS
     Indication: Immunosuppression

REACTIONS (2)
  - Labelled drug-drug interaction issue [Unknown]
  - Pancreatitis [Recovering/Resolving]
